FAERS Safety Report 6394783-1 (Version None)
Quarter: 2009Q4

REPORT INFORMATION
  Report Type: 
  Country: None (occurrence: None)
  Receive Date: 20091009
  Receipt Date: 20090930
  Transmission Date: 20100525
  Serious: Yes (Other)
  Sender: FDA-Public Use
  Company Number: FR-SOLVAY-00209005801

PATIENT
  Age: 30151 Day
  Sex: Female

DRUGS (6)
  1. STALEVO 100 [Concomitant]
     Indication: DRUG USE FOR UNKNOWN INDICATION
     Dosage: DAILY DOSE:  UNKNOWN
     Route: 065
  2. COVERSYL 2 MG [Suspect]
     Indication: DRUG USE FOR UNKNOWN INDICATION
     Dosage: DAILY DOSE: 2 MILLIGRAM(S), FREQUENCY: SINGLE INTAKE
     Route: 048
     Dates: start: 20090816, end: 20090816
  3. ATENOLOL [Suspect]
     Indication: DRUG USE FOR UNKNOWN INDICATION
     Dosage: DAILY DOSE: 50 MILLIGRAM(S), FREQUENCY: SINGLE INTAKE
     Route: 048
     Dates: start: 20090816, end: 20090816
  4. LASILIX [Suspect]
     Indication: DRUG USE FOR UNKNOWN INDICATION
     Dosage: DAILY DOSE: 40 MILLIGRAM(S), FREQUENCY: SINGLE INTAKE
     Route: 048
     Dates: start: 20090816, end: 20090816
  5. MODOPAR [Suspect]
     Indication: DRUG USE FOR UNKNOWN INDICATION
     Dosage: DAILY DOSE: 1 DOSAGE FORM, FREQUENCY: SINGLE INTAKE
     Route: 048
     Dates: start: 20090816, end: 20090816
  6. HEMIGOXINE NATIVELLE [Suspect]
     Indication: DRUG USE FOR UNKNOWN INDICATION
     Dosage: DAILY DOSE: 1 DOSAGE FORM, FREQUENCY: SINGLE INTAKE
     Route: 048
     Dates: start: 20090816, end: 20090816

REACTIONS (2)
  - DRUG ADMINISTRATION ERROR [None]
  - HYPOTENSION [None]
